FAERS Safety Report 20335292 (Version 1)
Quarter: 2022Q1

REPORT INFORMATION
  Report Type: Spontaneous
  Country: US (occurrence: None)
  Receive Date: 20220113
  Receipt Date: 20220113
  Transmission Date: 20220424
  Serious: No
  Sender: FDA-Public Use
  Company Number: None

PATIENT
  Age: 69 Year
  Sex: Male
  Weight: 96.66 kg

DRUGS (2)
  1. SOTROVIMAB [Suspect]
     Active Substance: SOTROVIMAB
     Indication: COVID-19
     Dates: start: 20220108, end: 20220108
  2. SODIUM CHLORIDE [Concomitant]
     Active Substance: SODIUM CHLORIDE
     Dates: start: 20220108, end: 20220108

REACTIONS (9)
  - Sneezing [None]
  - Vomiting [None]
  - Diarrhoea [None]
  - Infusion related reaction [None]
  - Tachypnoea [None]
  - Wheezing [None]
  - Urticaria [None]
  - Dyspnoea [None]
  - Heart rate increased [None]

NARRATIVE: CASE EVENT DATE: 20220108
